FAERS Safety Report 10501636 (Version 1)
Quarter: 2014Q4

REPORT INFORMATION
  Report Type: Spontaneous
  Country: US (occurrence: None)
  Receive Date: 20141006
  Receipt Date: 20141006
  Transmission Date: 20150528
  Serious: No
  Sender: FDA-Public Use
  Company Number: None

PATIENT
  Age: 71 Year
  Sex: Female

DRUGS (1)
  1. NEUPOGEN [Suspect]
     Active Substance: FILGRASTIM
     Indication: NEUTROPENIA
     Dosage: 480 CG 2-3 TIMES WEEKLY SUBCUTANEOUS
     Route: 058
     Dates: start: 20121228, end: 20140905

REACTIONS (1)
  - Hospice care [None]

NARRATIVE: CASE EVENT DATE: 20140905
